FAERS Safety Report 4443613-3 (Version None)
Quarter: 2004Q3

REPORT INFORMATION
  Report Type: 
  Country: None (occurrence: None)
  Receive Date: 20040830
  Receipt Date: 20040818
  Transmission Date: 20050211
  Serious: Yes (Hospitalization)
  Sender: FDA-Public Use
  Company Number: WAES 0408SWE00001

PATIENT
  Age: 12 Month
  Sex: Male

DRUGS (2)
  1. SINGULAIR [Suspect]
     Indication: RESPIRATORY SYNCYTIAL VIRUS INFECTION
     Dosage: 4 MG/DAILY PO
     Route: 048
     Dates: start: 20040310, end: 20040624
  2. FERROUS SUCCINATE [Concomitant]

REACTIONS (4)
  - BLOOD PRESSURE DECREASED [None]
  - HENOCH-SCHONLEIN PURPURA [None]
  - PLATELET COUNT INCREASED [None]
  - WHITE BLOOD CELL COUNT INCREASED [None]
